FAERS Safety Report 20472161 (Version 3)
Quarter: 2022Q1

REPORT INFORMATION
  Report Type: Spontaneous
  Country: TW (occurrence: TW)
  Receive Date: 20220214
  Receipt Date: 20220225
  Transmission Date: 20220423
  Serious: No
  Sender: FDA-Public Use
  Company Number: TW-BAXTER-2022BAX002691

PATIENT

DRUGS (10)
  1. DIANEAL LOW CALCIUM PERITONEAL DIALYSIS SOLUTION WITH DEXTROSE [Suspect]
     Active Substance: CALCIUM CHLORIDE\DEXTROSE\MAGNESIUM CHLORIDE\SODIUM CHLORIDE\SODIUM LACTATE
     Indication: Peritoneal dialysis
     Dosage: 1 BAG
     Route: 033
  2. DIANEAL LOW CALCIUM PERITONEAL DIALYSIS SOLUTION WITH DEXTROSE [Suspect]
     Active Substance: CALCIUM CHLORIDE\DEXTROSE\MAGNESIUM CHLORIDE\SODIUM CHLORIDE\SODIUM LACTATE
     Indication: Peritoneal dialysis
     Dosage: 1 BAG
     Route: 033
  3. EXTRANEAL [Suspect]
     Active Substance: CALCIUM CHLORIDE\ICODEXTRIN\MAGNESIUM CHLORIDE\SODIUM CHLORIDE\SODIUM LACTATE
     Indication: Peritoneal dialysis
     Dosage: 1 BAG
     Route: 033
  4. EPOETIN BETA [Suspect]
     Active Substance: ERYTHROPOIETIN
     Indication: Product used for unknown indication
     Dosage: 2000 IU/0.3 ML/SYRG, SC AS ORDER, MAINTAIN RECORMON Q5D TO KEEP HBANDGT;12
     Route: 058
  5. CAPHOS [Concomitant]
     Indication: Product used for unknown indication
     Dosage: 667 MG/TABLET, PO, ONE TAB TID
     Route: 048
  6. ALFACALCIDOL [Concomitant]
     Active Substance: ALFACALCIDOL
     Indication: Product used for unknown indication
     Dosage: 0.25 MICROGRAM/CAP, 1 CAP QDPC
     Route: 048
  7. Entresto FC [Concomitant]
     Indication: Product used for unknown indication
     Dosage: 100MG PER TAB, HALF TAB TWICE A DAY (BID)
     Route: 065
  8. PLAQUENIL [Concomitant]
     Active Substance: HYDROXYCHLOROQUINE SULFATE
     Indication: Product used for unknown indication
     Dosage: 200MG PER TAB, 1 TAB EVERY NIGHT (QN)
     Route: 065
  9. ALDACTONE [Concomitant]
     Active Substance: SPIRONOLACTONE
     Indication: Product used for unknown indication
     Dosage: 25MG PER TAB, 1 TAB ONCE IN A DAY AFTER MEALS (QDPC)
     Route: 065
  10. FOLIC ACID [Concomitant]
     Active Substance: FOLIC ACID
     Indication: Product used for unknown indication
     Dosage: 5 MG/TABLET, PO 1 TAB QD
     Route: 048

REACTIONS (2)
  - False positive investigation result [Unknown]
  - False positive investigation result [Unknown]

NARRATIVE: CASE EVENT DATE: 20210601
